FAERS Safety Report 26124039 (Version 1)
Quarter: 2025Q4

REPORT INFORMATION
  Report Type: Report from Study
  Country: BR (occurrence: BR)
  Receive Date: 20251205
  Receipt Date: 20251205
  Transmission Date: 20260117
  Serious: Yes (Hospitalization)
  Sender: JOHNSON AND JOHNSON
  Company Number: BR-JNJFOC-20251170095

PATIENT
  Age: 76 Year
  Sex: Male
  Weight: 103 kg

DRUGS (1)
  1. TALVEY [Suspect]
     Active Substance: TALQUETAMAB-TGVS
     Indication: Plasma cell myeloma
     Dosage: LAST APPLICATION: 12-NOV-2025 NEXT APPLICATION: 26-NOV-2025
     Dates: start: 20250731

REACTIONS (2)
  - Malnutrition [Recovering/Resolving]
  - Nasopharyngitis [Recovering/Resolving]
